FAERS Safety Report 19488952 (Version 1)
Quarter: 2021Q3

REPORT INFORMATION
  Report Type: Report from Study
  Country: None (occurrence: BR)
  Receive Date: 20210702
  Receipt Date: 20210702
  Transmission Date: 20211014
  Serious: Yes (Death, Other)
  Sender: FDA-Public Use
  Company Number: BR-ABBVIE-21K-020-3975763-00

PATIENT
  Sex: Male
  Weight: 75 kg

DRUGS (2)
  1. SKYRIZI [Suspect]
     Active Substance: RISANKIZUMAB-RZAA
     Indication: PSORIASIS
     Dosage: UNSPECIFIED DOSE
     Route: 058
     Dates: start: 20210114, end: 2021
  2. INSULIN [Concomitant]
     Active Substance: INSULIN NOS
     Indication: DIABETES MELLITUS

REACTIONS (3)
  - Haemorrhage [Fatal]
  - Anaemia [Fatal]
  - Hepatic cirrhosis [Fatal]

NARRATIVE: CASE EVENT DATE: 2021
